FAERS Safety Report 13555490 (Version 1)
Quarter: 2017Q2

REPORT INFORMATION
  Report Type: Spontaneous
  Country: US (occurrence: US)
  Receive Date: 20170517
  Receipt Date: 20170517
  Transmission Date: 20170830
  Serious: Yes (Hospitalization, Other)
  Sender: FDA-Public Use
  Company Number: US-MYLANLABS-2017M1029746

PATIENT

DRUGS (3)
  1. ABIRATERONE [Concomitant]
     Active Substance: ABIRATERONE
     Indication: CHEMOTHERAPY
     Dosage: 1G DAILY
     Route: 065
  2. PREDNISONE. [Suspect]
     Active Substance: PREDNISONE
     Indication: CHEMOTHERAPY
     Route: 065
  3. CALCIUM + VITAMIN D                /01483701/ [Suspect]
     Active Substance: CALCIUM\VITAMIN D
     Indication: PRODUCT USED FOR UNKNOWN INDICATION
     Dosage: CALCIUM/VITAMIN-D 500MG/200IU TWICE A DAY
     Route: 048

REACTIONS (3)
  - Hypercalcaemia [Recovered/Resolved]
  - Withdrawal syndrome [Recovered/Resolved]
  - Adrenal insufficiency [Recovered/Resolved]
